FAERS Safety Report 7262000-6 (Version None)
Quarter: 2011Q1

REPORT INFORMATION
  Report Type: 
  Country: None (occurrence: None)
  Receive Date: 20110130
  Receipt Date: 20101104
  Transmission Date: 20110831
  Serious: No
  Sender: FDA-Public Use
  Company Number: US-ABBOTT-10P-163-0683382-00

PATIENT
  Age: 74 Year
  Sex: Male

DRUGS (6)
  1. UREXATAL [Concomitant]
     Indication: PROSTATIC DISORDER
  2. HUMIRA [Suspect]
     Indication: PRODUCT USED FOR UNKNOWN INDICATION
     Dates: start: 20101007
  3. AVODART [Concomitant]
     Indication: URINARY TRACT DISORDER
  4. SYMBICORT [Concomitant]
     Indication: BLOOD CHOLESTEROL
  5. ATENOLOL [Concomitant]
     Indication: BLOOD PRESSURE
  6. RAMIPRIL [Concomitant]
     Indication: CARDIAC DISORDER

REACTIONS (1)
  - RASH [None]
